FAERS Safety Report 5307153-1 (Version None)
Quarter: 2007Q2

REPORT INFORMATION
  Report Type: 
  Country: None (occurrence: None)
  Receive Date: 20070425
  Receipt Date: 20070119
  Transmission Date: 20071010
  Serious: No
  Sender: FDA-Public Use
  Company Number: US-AMGEN-US207613

PATIENT
  Sex: Female
  Weight: 55.8 kg

DRUGS (4)
  1. VECTIBIX [Suspect]
     Indication: COLORECTAL CANCER
     Route: 042
     Dates: start: 20061027
  2. OXALIPLATIN [Concomitant]
     Dates: start: 20061027
  3. LEUCOVORIN CALCIUM [Concomitant]
     Dates: start: 20061027
  4. FLUOROURACIL [Concomitant]
     Route: 042
     Dates: start: 20061027

REACTIONS (5)
  - DIARRHOEA [None]
  - HYPOMAGNESAEMIA [None]
  - MUCOSAL INFLAMMATION [None]
  - NAUSEA [None]
  - VOMITING [None]
